FAERS Safety Report 26211855 (Version 1)
Quarter: 2025Q4

REPORT INFORMATION
  Report Type: Spontaneous
  Country: US (occurrence: US)
  Receive Date: 20251230
  Receipt Date: 20251230
  Transmission Date: 20260117
  Serious: No
  Sender: ALKEM
  Company Number: US-ALKEM LABORATORIES LIMITED-US-ALKEM-2025-10828

PATIENT
  Age: 46 Year
  Sex: Male

DRUGS (5)
  1. ARIPIPRAZOLE [Suspect]
     Active Substance: ARIPIPRAZOLE
     Indication: Depression
     Dosage: 2 MILLIGRAM, QD
     Route: 065
  2. LURASIDONE [Suspect]
     Active Substance: LURASIDONE
     Indication: Depression
     Dosage: 20 MILLIGRAM, QD
     Route: 065
  3. BUPROPION\DEXTROMETHORPHAN [Concomitant]
     Active Substance: BUPROPION\DEXTROMETHORPHAN
     Indication: Depression
     Dosage: UNK, BID (45-105 MILLIGRAM)
     Route: 065
  4. ESKETAMINE [Concomitant]
     Active Substance: ESKETAMINE
     Indication: Depression
     Dosage: 84 MILLIGRAM, ONCE WEEKLY
     Route: 065
  5. VILAZODONE [Concomitant]
     Active Substance: VILAZODONE
     Indication: Depression
     Dosage: 40 MILLIGRAM, OD
     Route: 065

REACTIONS (1)
  - Akathisia [Recovered/Resolved]
